FAERS Safety Report 5179333-X (Version None)
Quarter: 2006Q4

REPORT INFORMATION
  Report Type: 
  Country: None (occurrence: None)
  Receive Date: 20061219
  Receipt Date: 20051010
  Transmission Date: 20070319
  Serious: Yes (Life-Threatening, Hospitalization)
  Sender: FDA-Public Use
  Company Number: 419074

PATIENT
  Age: 38 Year
  Sex: Male

DRUGS (10)
  1. CARVEDILOL [Suspect]
     Indication: MYOCARDIAL INFARCTION
     Route: 048
     Dates: start: 20041110, end: 20060629
  2. RENIVACE [Suspect]
     Dosage: 2.5MG PER DAY
     Route: 048
     Dates: start: 20040922, end: 20050525
  3. ASPIRIN [Concomitant]
     Dates: start: 20040922, end: 20050525
  4. DILTIAZEM HCL [Concomitant]
     Dates: start: 20040922, end: 20041109
  5. LIPITOR [Concomitant]
     Dates: start: 20040922, end: 20050525
  6. WARFARIN SODIUM [Concomitant]
     Dates: start: 20040922, end: 20050409
  7. LOSARTAN POTASSIUM [Concomitant]
     Dates: start: 20050526
  8. TICLOPIDINE HYDROCHLORIDE [Concomitant]
     Dates: start: 20050410, end: 20050525
  9. INSULIN [Concomitant]
     Dates: start: 20040922, end: 20050525
  10. ALLOPURINOL [Concomitant]
     Dates: start: 20050421, end: 20050525

REACTIONS (6)
  - ACUTE MYOCARDIAL INFARCTION [None]
  - ANGINA UNSTABLE [None]
  - BLOOD PRESSURE DECREASED [None]
  - CHEST PAIN [None]
  - CORONARY ARTERY STENOSIS [None]
  - COUGH [None]
